FAERS Safety Report 11867327 (Version 1)
Quarter: 2015Q4

REPORT INFORMATION
  Report Type: Other
  Country: US (occurrence: US)
  Receive Date: 20151224
  Receipt Date: 20151224
  Transmission Date: 20160305
  Serious: Yes (Hospitalization, Disabling, Other)
  Sender: FDA-Public Use
  Company Number: US-ACORDA-ACO_120097_2015

PATIENT
  Age: 58 Year
  Sex: Female

DRUGS (3)
  1. TYSABRI [Concomitant]
     Active Substance: NATALIZUMAB
     Indication: PRODUCT USED FOR UNKNOWN INDICATION
     Dosage: UNK
     Route: 065
  2. AMPYRA [Suspect]
     Active Substance: DALFAMPRIDINE
     Indication: MULTIPLE SCLEROSIS
     Dosage: 10 MG, Q 12 HRS
     Route: 048
     Dates: start: 2011, end: 201507
  3. AMPYRA [Suspect]
     Active Substance: DALFAMPRIDINE
     Dosage: 10 MG, Q 12 HRS
     Route: 048
     Dates: start: 201508

REACTIONS (19)
  - Gastric haemorrhage [Unknown]
  - Abasia [Unknown]
  - Multiple sclerosis relapse [Unknown]
  - Oedema peripheral [Recovering/Resolving]
  - Dyspnoea [Unknown]
  - Pyrexia [Unknown]
  - Pain [Unknown]
  - Dehydration [Unknown]
  - Meningitis [Unknown]
  - Multiple sclerosis [Unknown]
  - JC virus test positive [Unknown]
  - Peroneal nerve palsy [Not Recovered/Not Resolved]
  - Sinusitis [Unknown]
  - Delirium [Unknown]
  - Gastrointestinal disorder [Unknown]
  - Ear infection [Unknown]
  - Condition aggravated [Not Recovered/Not Resolved]
  - Cystitis [Unknown]
  - Hypertension [Unknown]

NARRATIVE: CASE EVENT DATE: 201509
